FAERS Safety Report 6668365-8 (Version None)
Quarter: 2010Q2

REPORT INFORMATION
  Report Type: 
  Country: None (occurrence: None)
  Receive Date: 20100401
  Receipt Date: 20100323
  Transmission Date: 20101027
  Serious: Yes (Other)
  Sender: FDA-Public Use
  Company Number: 2010AL000074

PATIENT
  Age: 23 Year
  Sex: Female

DRUGS (1)
  1. SERTRALINE HYDROCHLORIDE [Suspect]
     Dosage: 50 MG, HS
     Dates: start: 20080401, end: 20080501

REACTIONS (2)
  - CONDITION AGGRAVATED [None]
  - PSORIASIS [None]
